FAERS Safety Report 10444296 (Version 2)
Quarter: 2014Q3

REPORT INFORMATION
  Report Type: Report from Study
  Country: FR (occurrence: FR)
  Receive Date: 20140910
  Receipt Date: 20140917
  Transmission Date: 20150326
  Serious: Yes (Hospitalization, Other)
  Sender: FDA-Public Use
  Company Number: PHHY2014FR108895

PATIENT
  Age: 88 Year
  Sex: Female

DRUGS (4)
  1. ICL670A [Suspect]
     Active Substance: DEFERASIROX
     Indication: MYELODYSPLASTIC SYNDROME
     Dosage: 500 MG, BID
     Route: 048
     Dates: start: 20130912, end: 20140808
  2. DUROGESIC [Suspect]
     Active Substance: FENTANYL
     Indication: PAIN IN EXTREMITY
     Dosage: 50 UG, PER 72 HOURS
     Route: 062
     Dates: start: 2012
  3. ICL670A [Suspect]
     Active Substance: DEFERASIROX
     Dosage: 500 MG, BID
     Route: 048
     Dates: start: 20140814
  4. KARDEGIC [Concomitant]
     Active Substance: ASPIRIN LYSINE
     Dosage: 160 MG, QD

REACTIONS (9)
  - White blood cell count decreased [Unknown]
  - Cerebrovascular disorder [Unknown]
  - Cognitive disorder [Unknown]
  - Altered state of consciousness [Recovered/Resolved]
  - Gait disturbance [Unknown]
  - Anaemia [Unknown]
  - Overdose [Unknown]
  - Glycosylated haemoglobin increased [Unknown]
  - Disorientation [Recovered/Resolved]

NARRATIVE: CASE EVENT DATE: 20140807
